FAERS Safety Report 25899181 (Version 3)
Quarter: 2025Q4

REPORT INFORMATION
  Report Type: Spontaneous
  Country: EU (occurrence: EU)
  Receive Date: 20251009
  Receipt Date: 20251204
  Transmission Date: 20260118
  Serious: Yes (Other)
  Sender: TEVA
  Company Number: EU-TEVA-VS-3378912

PATIENT
  Age: 30 Year
  Sex: Female

DRUGS (1)
  1. AJOVY [Suspect]
     Active Substance: FREMANEZUMAB-VFRM
     Indication: Migraine
     Dosage: 225MG/SYRINGE, QUATERLY DOSE
     Route: 065
     Dates: start: 20241217, end: 2025

REACTIONS (8)
  - Weight decreased [Recovering/Resolving]
  - Negative thoughts [Recovering/Resolving]
  - Depression [Recovering/Resolving]
  - Inappropriate schedule of product administration [Unknown]
  - Mania [Recovering/Resolving]
  - Decreased appetite [Recovering/Resolving]
  - Suicidal ideation [Recovering/Resolving]
  - Bipolar disorder [Recovering/Resolving]

NARRATIVE: CASE EVENT DATE: 20241201
